FAERS Safety Report 25082842 (Version 1)
Quarter: 2025Q1

REPORT INFORMATION
  Report Type: Spontaneous
  Country: CN (occurrence: CN)
  Receive Date: 20250317
  Receipt Date: 20250317
  Transmission Date: 20250408
  Serious: Yes (Death, Other)
  Sender: SANOFI AVENTIS
  Company Number: CN-SANOFI-02444836

PATIENT
  Age: 95 Year
  Sex: Male

DRUGS (1)
  1. DUPIXENT [Suspect]
     Active Substance: DUPILUMAB
     Indication: Dermatitis atopic
     Dates: start: 20250225, end: 20250225

REACTIONS (3)
  - Death [Fatal]
  - Muscular weakness [Unknown]
  - Burning sensation [Unknown]

NARRATIVE: CASE EVENT DATE: 20250225
